FAERS Safety Report 13730057 (Version 1)
Quarter: 2017Q3

REPORT INFORMATION
  Report Type: Spontaneous
  Country: US (occurrence: US)
  Receive Date: 20170707
  Receipt Date: 20170707
  Transmission Date: 20171127
  Serious: Yes (Hospitalization, Other)
  Sender: FDA-Public Use
  Company Number: US-MYLANLABS-2017M1040218

PATIENT

DRUGS (1)
  1. SOTRADECOL [Suspect]
     Active Substance: SODIUM TETRADECYL SULFATE
     Indication: SCLEROTHERAPY
     Dosage: 25 ML OF 3% SODIUM TETRADECYL SULFATE MIXED WITH A 25 ML OF ROOM AIR
     Route: 065

REACTIONS (4)
  - Overdose [Recovered/Resolved]
  - Nephritis allergic [Recovered/Resolved]
  - Tubulointerstitial nephritis [Recovered/Resolved]
  - Acidosis [Recovered/Resolved]
